FAERS Safety Report 26045096 (Version 1)
Quarter: 2025Q4

REPORT INFORMATION
  Report Type: Spontaneous
  Country: CN (occurrence: CN)
  Receive Date: 20251114
  Receipt Date: 20251114
  Transmission Date: 20260119
  Serious: Yes (Hospitalization, Other)
  Sender: QUAGEN PHARMACEUTICALS
  Company Number: CN-QUAGEN-2025QUALIT00746

PATIENT
  Age: 60 Year
  Sex: Male

DRUGS (3)
  1. TRIAMCINOLONE ACETONIDE [Suspect]
     Active Substance: TRIAMCINOLONE ACETONIDE
     Indication: Endocrine ophthalmopathy
     Dosage: 5 INJECTIONS
     Route: 050
  2. METHYLPREDNISOLONE [Suspect]
     Active Substance: METHYLPREDNISOLONE
     Indication: Endocrine ophthalmopathy
     Route: 042
  3. METHIMAZOLE [Concomitant]
     Active Substance: METHIMAZOLE
     Route: 048

REACTIONS (5)
  - Blindness [Recovered/Resolved]
  - Central serous chorioretinopathy [Recovered/Resolved]
  - Condition aggravated [Recovered/Resolved]
  - Metamorphopsia [Recovered/Resolved]
  - Product use in unapproved indication [Unknown]
